FAERS Safety Report 25752783 (Version 1)
Quarter: 2025Q3

REPORT INFORMATION
  Report Type: Spontaneous
  Country: EU (occurrence: EU)
  Receive Date: 20250902
  Receipt Date: 20250902
  Transmission Date: 20251020
  Serious: Yes (Other)
  Sender: REGENERON
  Company Number: EU-REGENERON PHARMACEUTICALS, INC.-2025-138422

PATIENT
  Age: 72 Year

DRUGS (1)
  1. LIBTAYO [Suspect]
     Active Substance: CEMIPLIMAB-RWLC
     Indication: Non-small cell lung cancer

REACTIONS (1)
  - Nephritis [Recovering/Resolving]

NARRATIVE: CASE EVENT DATE: 20250101
